FAERS Safety Report 12456310 (Version 1)
Quarter: 2016Q2

REPORT INFORMATION
  Report Type: Spontaneous
  Country: US (occurrence: US)
  Receive Date: 20160610
  Receipt Date: 20160610
  Transmission Date: 20160815
  Serious: Yes (Other)
  Sender: FDA-Public Use
  Company Number: US-TEVA-665803USA

PATIENT
  Age: 46 Year
  Sex: Female

DRUGS (1)
  1. ZECUITY [Suspect]
     Active Substance: SUMATRIPTAN SUCCINATE
     Indication: MIGRAINE
     Route: 062
     Dates: start: 201605, end: 201605

REACTIONS (5)
  - Application site pain [Recovering/Resolving]
  - Application site discolouration [Recovering/Resolving]
  - Application site inflammation [Recovering/Resolving]
  - Product physical issue [Unknown]
  - Application site burn [Recovering/Resolving]

NARRATIVE: CASE EVENT DATE: 201605
